FAERS Safety Report 8000694-8 (Version None)
Quarter: 2011Q4

REPORT INFORMATION
  Report Type: 
  Country: None (occurrence: None)
  Receive Date: 20111222
  Receipt Date: 20111213
  Transmission Date: 20120403
  Serious: Yes (Other)
  Sender: FDA-Public Use
  Company Number: IT-PAR PHARMACEUTICAL, INC-2011SCPR003455

PATIENT

DRUGS (1)
  1. PROPAFENONE HCL [Suspect]
     Indication: PRODUCT USED FOR UNKNOWN INDICATION
     Dosage: 450 MG, / DAY
     Route: 065

REACTIONS (2)
  - HEPATOTOXICITY [None]
  - MIXED LIVER INJURY [None]
